FAERS Safety Report 13115998 (Version 2)
Quarter: 2017Q2

REPORT INFORMATION
  Report Type: Report from Study
  Country: JP (occurrence: JP)
  Receive Date: 20170116
  Receipt Date: 20170407
  Transmission Date: 20170830
  Serious: Yes (Other)
  Sender: FDA-Public Use
  Company Number: JP-UCBSA-2017001183

PATIENT
  Age: 82 Year
  Sex: Male
  Weight: 60 kg

DRUGS (6)
  1. E KEPPRA [Suspect]
     Active Substance: LEVETIRACETAM
     Indication: PARTIAL SEIZURES WITH SECONDARY GENERALISATION
     Dosage: 1500 MG, 2X/DAY (BID)
     Route: 048
     Dates: start: 20161026
  2. DIPRIVAN [Concomitant]
     Active Substance: PROPOFOL
     Indication: PARTIAL SEIZURES WITH SECONDARY GENERALISATION
     Dosage: 2400 MG, ONCE DAILY (QD)
     Route: 042
     Dates: start: 20161020, end: 20161031
  3. FOSPHENYTOIN SODIUM. [Concomitant]
     Active Substance: FOSPHENYTOIN SODIUM
     Indication: PRODUCT USED FOR UNKNOWN INDICATION
     Dosage: UNK
     Dates: start: 20160928, end: 20161107
  4. LEVETIRACETAM. [Suspect]
     Active Substance: LEVETIRACETAM
     Indication: PARTIAL SEIZURES WITH SECONDARY GENERALISATION
     Dosage: 1000 MG, 2X/DAY (BID)
     Route: 041
     Dates: start: 20161020, end: 20161025
  5. ZONISAMIDE. [Concomitant]
     Active Substance: ZONISAMIDE
     Indication: PARTIAL SEIZURES WITH SECONDARY GENERALISATION
     Dosage: 300 MG DAILY
     Route: 048
     Dates: start: 20161024
  6. HALFDIGOXIN [Concomitant]
     Active Substance: DIGOXIN
     Indication: PRODUCT USED FOR UNKNOWN INDICATION
     Dosage: 0.125MG DAILY
     Route: 048

REACTIONS (2)
  - Sepsis [Recovering/Resolving]
  - Status epilepticus [Recovering/Resolving]

NARRATIVE: CASE EVENT DATE: 20161020
